FAERS Safety Report 5827817-0 (Version None)
Quarter: 2008Q3

REPORT INFORMATION
  Report Type: 
  Country: None (occurrence: None)
  Receive Date: 20080730
  Receipt Date: 20080724
  Transmission Date: 20090109
  Serious: Yes (Hospitalization)
  Sender: FDA-Public Use
  Company Number: NL-ALLERGAN-0808343US

PATIENT
  Sex: Male
  Weight: 20 kg

DRUGS (7)
  1. BOTOX [Suspect]
     Indication: MUSCLE SPASTICITY
     Dosage: 440 UNITS, SINGLE
     Route: 030
     Dates: start: 20080509, end: 20080509
  2. BOTOX [Suspect]
     Indication: QUADRIPLEGIA
     Dosage: 430 UNITS, SINGLE
     Route: 030
     Dates: start: 20070501, end: 20070501
  3. BOTOX [Suspect]
     Dosage: 400 UNITS, SINGLE
     Route: 030
     Dates: start: 20060201, end: 20060201
  4. BOTOX [Suspect]
     Dosage: 355 UNITS, SINGLE
     Route: 030
     Dates: start: 20050401, end: 20050401
  5. BOTOX [Suspect]
     Dosage: 300 UNITS, SINGLE
     Route: 030
     Dates: start: 20040501, end: 20040501
  6. BOTOX [Suspect]
     Dosage: 300 UNITS, SINGLE
     Route: 030
     Dates: start: 20031101, end: 20031101
  7. ANAESTHESIA [Concomitant]
     Dosage: UNK, SINGLE
     Dates: start: 20080509, end: 20080509

REACTIONS (12)
  - ABDOMINAL PAIN [None]
  - APNOEA [None]
  - CHOKING [None]
  - CYANOSIS [None]
  - HYPOTONIA [None]
  - LOSS OF CONSCIOUSNESS [None]
  - MALAISE [None]
  - MYDRIASIS [None]
  - PALLOR [None]
  - RESPIRATORY ARREST [None]
  - SKIN DISCOLOURATION [None]
  - UNRESPONSIVE TO STIMULI [None]
